FAERS Safety Report 17031395 (Version 9)
Quarter: 2024Q1

REPORT INFORMATION
  Report Type: Spontaneous
  Country: US (occurrence: US)
  Receive Date: 20191114
  Receipt Date: 20240320
  Transmission Date: 20240410
  Serious: Yes (Hospitalization, Other)
  Sender: FDA-Public Use
  Company Number: US-PFIZER INC-2019491007

PATIENT
  Age: 68 Year
  Sex: Male
  Weight: 117.93 kg

DRUGS (1)
  1. XELJANZ [Suspect]
     Active Substance: TOFACITINIB CITRATE
     Indication: Pain
     Dosage: 5 MG TWICE DAILY
     Route: 048
     Dates: start: 20191028, end: 20231205

REACTIONS (17)
  - Herpes zoster [Recovered/Resolved]
  - Lung disorder [Recovered/Resolved]
  - Skin disorder [Recovered/Resolved]
  - Pain [Not Recovered/Not Resolved]
  - Rash [Unknown]
  - Dizziness [Unknown]
  - Weight decreased [Unknown]
  - Vertigo [Recovered/Resolved]
  - Blood pressure abnormal [Recovered/Resolved]
  - Viral infection [Unknown]
  - Eye infection viral [Unknown]
  - Blood pressure decreased [Unknown]
  - Carbon dioxide increased [Unknown]
  - Sleep apnoea syndrome [Recovered/Resolved]
  - Hypoacusis [Unknown]
  - Pain in extremity [Unknown]
  - Headache [Unknown]

NARRATIVE: CASE EVENT DATE: 20191111
